FAERS Safety Report 7549438-4 (Version None)
Quarter: 2011Q2

REPORT INFORMATION
  Report Type: 
  Country: None (occurrence: None)
  Receive Date: 20110615
  Receipt Date: 20040902
  Transmission Date: 20111010
  Serious: Yes (Congenital Anomaly, Other)
  Sender: FDA-Public Use
  Company Number: PHFR2004GB02670

PATIENT
  Sex: Male

DRUGS (3)
  1. AMISULPRIDE [Concomitant]
     Route: 064
  2. HYOSCINE [Concomitant]
     Route: 064
  3. CLOZAPINE [Suspect]
     Route: 064

REACTIONS (6)
  - TRISOMY 21 [None]
  - MATERNAL DRUGS AFFECTING FOETUS [None]
  - CAESAREAN SECTION [None]
  - DYSPNOEA [None]
  - CONGENITAL ANOMALY [None]
  - PREMATURE BABY [None]
